FAERS Safety Report 9737041 (Version 2)
Quarter: 2013Q4

REPORT INFORMATION
  Report Type: Spontaneous
  Country: US (occurrence: US)
  Receive Date: 20131206
  Receipt Date: 20131206
  Transmission Date: 20140711
  Serious: No
  Sender: FDA-Public Use
  Company Number: US-GILEAD-2009-0024077

PATIENT
  Sex: Female
  Weight: 60.78 kg

DRUGS (20)
  1. LETAIRIS [Suspect]
     Indication: PULMONARY ARTERIAL HYPERTENSION
     Route: 048
     Dates: start: 20090802, end: 20090901
  2. REVATIO [Concomitant]
  3. DIGOXIN [Concomitant]
  4. HYDRALAZINE [Concomitant]
  5. LOPRESSOR HCT [Concomitant]
  6. ASPIRIN [Concomitant]
  7. LASIX [Concomitant]
  8. ALBUTEROL [Concomitant]
  9. PULMICORT [Concomitant]
  10. TYLENOL 8 HOUR [Concomitant]
  11. MUCINEX [Concomitant]
  12. PROCRIT [Concomitant]
  13. ATIVAN [Concomitant]
  14. DARVOCET-N [Concomitant]
  15. ROCALTROL [Concomitant]
  16. NEPHROCAPS [Concomitant]
  17. EQL FERROUS SULFATE [Concomitant]
  18. POTASSIUM CHLORIDE [Concomitant]
  19. ERGOCALCIFEROL [Concomitant]
  20. DROVANA [Concomitant]

REACTIONS (1)
  - Liver function test abnormal [Unknown]
